FAERS Safety Report 6567952-5 (Version None)
Quarter: 2010Q1

REPORT INFORMATION
  Report Type: 
  Country: None (occurrence: None)
  Receive Date: 20100203
  Receipt Date: 20090521
  Transmission Date: 20100710
  Serious: Yes (Death)
  Sender: FDA-Public Use
  Company Number: PHEH2009US18895

PATIENT

DRUGS (1)
  1. EXJADE [Suspect]
     Indication: IRON OVERLOAD
     Dosage: 1000 MG DAILY
     Route: 048

REACTIONS (4)
  - ACUTE MYELOID LEUKAEMIA [None]
  - CONCOMITANT DISEASE PROGRESSION [None]
  - CORONARY ARTERY DISEASE [None]
  - MALIGNANT NEOPLASM PROGRESSION [None]
